FAERS Safety Report 4866582-0 (Version None)
Quarter: 2005Q4

REPORT INFORMATION
  Report Type: 
  Country: None (occurrence: None)
  Receive Date: 20051221
  Receipt Date: 20051208
  Transmission Date: 20060501
  Serious: Yes (Other)
  Sender: FDA-Public Use
  Company Number: 13017

PATIENT
  Age: 84 Year
  Sex: Female

DRUGS (5)
  1. AMIODARONE [Suspect]
     Indication: ATRIAL FIBRILLATION
  2. AMIODARONE [Suspect]
     Indication: ATRIAL FIBRILLATION
     Dosage: 800 MG DAILY
  3. AMIODARONE [Suspect]
     Indication: ATRIAL FIBRILLATION
     Dosage: 200 MG DAILY
  4. VERAPAMIL [Concomitant]
  5. WARFARIN SODIUM [Concomitant]

REACTIONS (9)
  - ACTIVITIES OF DAILY LIVING IMPAIRED [None]
  - BALANCE DISORDER [None]
  - COORDINATION ABNORMAL [None]
  - DYSSTASIA [None]
  - FALL [None]
  - NEUROMYOPATHY [None]
  - NEUROTOXICITY [None]
  - SUICIDAL IDEATION [None]
  - TREMOR [None]
